FAERS Safety Report 25440190 (Version 1)
Quarter: 2025Q2

REPORT INFORMATION
  Report Type: Spontaneous
  Country: US (occurrence: US)
  Receive Date: 20250616
  Receipt Date: 20250616
  Transmission Date: 20250716
  Serious: Yes (Hospitalization)
  Sender: MYLAN
  Company Number: US-MYLANLABS-2025M1049938

PATIENT
  Age: 4 Decade
  Sex: Male

DRUGS (36)
  1. DEXAMETHASONE [Suspect]
     Active Substance: DEXAMETHASONE
     Indication: Immune thrombocytopenia
     Dosage: UNK, QD
  2. DEXAMETHASONE [Suspect]
     Active Substance: DEXAMETHASONE
     Dosage: UNK, QD
     Route: 065
  3. DEXAMETHASONE [Suspect]
     Active Substance: DEXAMETHASONE
     Dosage: UNK, QD
     Route: 065
  4. DEXAMETHASONE [Suspect]
     Active Substance: DEXAMETHASONE
     Dosage: UNK, QD
  5. DEXAMETHASONE SODIUM PHOSPHATE [Suspect]
     Active Substance: DEXAMETHASONE SODIUM PHOSPHATE
     Indication: Immune thrombocytopenia
  6. DEXAMETHASONE SODIUM PHOSPHATE [Suspect]
     Active Substance: DEXAMETHASONE SODIUM PHOSPHATE
     Route: 042
  7. DEXAMETHASONE SODIUM PHOSPHATE [Suspect]
     Active Substance: DEXAMETHASONE SODIUM PHOSPHATE
     Route: 042
  8. DEXAMETHASONE SODIUM PHOSPHATE [Suspect]
     Active Substance: DEXAMETHASONE SODIUM PHOSPHATE
  9. PREDNISONE [Suspect]
     Active Substance: PREDNISONE
     Indication: Immune thrombocytopenia
     Dosage: UNK, QD
  10. PREDNISONE [Suspect]
     Active Substance: PREDNISONE
     Dosage: UNK, QD
     Route: 065
  11. PREDNISONE [Suspect]
     Active Substance: PREDNISONE
     Dosage: UNK, QD
     Route: 065
  12. PREDNISONE [Suspect]
     Active Substance: PREDNISONE
     Dosage: UNK, QD
  13. IMMUNE GLOBULIN NOS [Suspect]
     Active Substance: IMMUNE GLOBULIN NOS
     Indication: Immune thrombocytopenia
  14. IMMUNE GLOBULIN NOS [Suspect]
     Active Substance: IMMUNE GLOBULIN NOS
     Route: 042
  15. IMMUNE GLOBULIN NOS [Suspect]
     Active Substance: IMMUNE GLOBULIN NOS
     Route: 042
  16. IMMUNE GLOBULIN NOS [Suspect]
     Active Substance: IMMUNE GLOBULIN NOS
  17. CYCLOPHOSPHAMIDE [Suspect]
     Active Substance: CYCLOPHOSPHAMIDE
     Indication: Immune thrombocytopenia
  18. CYCLOPHOSPHAMIDE [Suspect]
     Active Substance: CYCLOPHOSPHAMIDE
     Route: 065
  19. CYCLOPHOSPHAMIDE [Suspect]
     Active Substance: CYCLOPHOSPHAMIDE
     Route: 065
  20. CYCLOPHOSPHAMIDE [Suspect]
     Active Substance: CYCLOPHOSPHAMIDE
  21. FOSTAMATINIB [Suspect]
     Active Substance: FOSTAMATINIB
     Indication: Immune thrombocytopenia
  22. FOSTAMATINIB [Suspect]
     Active Substance: FOSTAMATINIB
     Route: 065
  23. FOSTAMATINIB [Suspect]
     Active Substance: FOSTAMATINIB
     Route: 065
  24. FOSTAMATINIB [Suspect]
     Active Substance: FOSTAMATINIB
  25. RITUXIMAB [Suspect]
     Active Substance: RITUXIMAB
     Indication: Immune thrombocytopenia
     Dosage: UNK, QW
  26. RITUXIMAB [Suspect]
     Active Substance: RITUXIMAB
     Dosage: UNK, QW
     Route: 065
  27. RITUXIMAB [Suspect]
     Active Substance: RITUXIMAB
     Dosage: UNK, QW
     Route: 065
  28. RITUXIMAB [Suspect]
     Active Substance: RITUXIMAB
     Dosage: UNK, QW
  29. ROMIPLOSTIM [Suspect]
     Active Substance: ROMIPLOSTIM
     Indication: Immune thrombocytopenia
  30. ROMIPLOSTIM [Suspect]
     Active Substance: ROMIPLOSTIM
     Route: 065
  31. ROMIPLOSTIM [Suspect]
     Active Substance: ROMIPLOSTIM
     Route: 065
  32. ROMIPLOSTIM [Suspect]
     Active Substance: ROMIPLOSTIM
  33. ELTROMBOPAG [Concomitant]
     Active Substance: ELTROMBOPAG
     Indication: Immune thrombocytopenia
     Dosage: UNK, QD
  34. ELTROMBOPAG [Concomitant]
     Active Substance: ELTROMBOPAG
     Dosage: UNK, QD
     Route: 048
  35. ELTROMBOPAG [Concomitant]
     Active Substance: ELTROMBOPAG
     Dosage: UNK, QD
     Route: 048
  36. ELTROMBOPAG [Concomitant]
     Active Substance: ELTROMBOPAG
     Dosage: UNK, QD

REACTIONS (1)
  - Drug ineffective [Unknown]
